FAERS Safety Report 9725175 (Version 1)
Quarter: 2013Q4

REPORT INFORMATION
  Report Type: Spontaneous
  Country: US (occurrence: US)
  Receive Date: 20131203
  Receipt Date: 20131203
  Transmission Date: 20140711
  Serious: Yes (Other)
  Sender: FDA-Public Use
  Company Number: US-BEH-2013039099

PATIENT
  Age: 72 Year
  Sex: Female
  Weight: 43 kg

DRUGS (21)
  1. ZEMAIRA [Suspect]
     Indication: ALPHA-1 ANTI-TRYPSIN DEFICIENCY
     Dosage: 3.5 ML/MIN.
     Route: 042
  2. ZEMAIRA [Suspect]
     Indication: EMPHYSEMA
     Dosage: 3.5 ML/MIN.
     Route: 042
  3. EVISTA [Concomitant]
  4. COMBIVENT [Concomitant]
  5. DIPHENHYDRAMINE [Concomitant]
  6. HEPARIN [Concomitant]
  7. SODIUM CHLORIDE [Concomitant]
  8. EPI-PEN [Concomitant]
  9. LMX [Concomitant]
  10. XOLAIR [Concomitant]
  11. OXYGEN [Concomitant]
  12. ADVAIR [Concomitant]
  13. ASPIRIN [Concomitant]
  14. SIMVASTATIN [Concomitant]
  15. LEVAQUIN [Concomitant]
  16. FLONASE [Concomitant]
  17. VITAMIN D [Concomitant]
  18. CALCIUM [Concomitant]
  19. BUDEPRION [Concomitant]
  20. XOPENEX [Concomitant]
  21. OMEPRAZOLE [Concomitant]

REACTIONS (1)
  - Haemoptysis [Unknown]
